FAERS Safety Report 4958897-2 (Version None)
Quarter: 2006Q1

REPORT INFORMATION
  Report Type: 
  Country: None (occurrence: None)
  Receive Date: 20060324
  Receipt Date: 20060317
  Transmission Date: 20060701
  Serious: Yes (Death, Life-Threatening, Hospitalization, Other)
  Sender: FDA-Public Use
  Company Number: 200610045BWH

PATIENT
  Age: 63 Year
  Sex: Male

DRUGS (10)
  1. SORAFENIB [Suspect]
     Indication: METASTATIC RENAL CELL CARCINOMA
     Dosage: 400 MG, BID, ORAL
     Route: 048
     Dates: start: 20051223, end: 20060107
  2. DECADRON [Concomitant]
  3. ADVAIR DISKUS 100/50 [Concomitant]
  4. COMBIVENT [Concomitant]
  5. LISINOPRIL [Concomitant]
  6. PHENERGAN EXPECTORANT W/ CODEINE [Concomitant]
  7. NICOTINE [Concomitant]
  8. MAALOX FAST BLOCKER [Concomitant]
  9. AMBIEN [Concomitant]
  10. LOVASTATIN [Concomitant]

REACTIONS (14)
  - ASTHENIA [None]
  - DISEASE PROGRESSION [None]
  - INTESTINAL PERFORATION [None]
  - LOBAR PNEUMONIA [None]
  - LYMPHADENOPATHY [None]
  - METASTASES TO LIVER [None]
  - NAUSEA [None]
  - NEOPLASM PROGRESSION [None]
  - OEDEMA PERIPHERAL [None]
  - PERITONITIS [None]
  - PLEURAL EFFUSION [None]
  - RESPIRATORY FAILURE [None]
  - SMALL INTESTINE CARCINOMA METASTATIC [None]
  - WHITE BLOOD CELL COUNT INCREASED [None]
